FAERS Safety Report 7997457-6 (Version None)
Quarter: 2011Q4

REPORT INFORMATION
  Report Type: 
  Country: None (occurrence: None)
  Receive Date: 20111221
  Receipt Date: 20111215
  Transmission Date: 20120403
  Serious: Yes (Hospitalization, Other)
  Sender: FDA-Public Use
  Company Number: ES-PFIZER INC-2011305648

PATIENT
  Age: 14 Year
  Sex: Male

DRUGS (2)
  1. VORICONAZOLE [Suspect]
     Indication: PNEUMONIA FUNGAL
     Dosage: UNK
     Dates: start: 20100801
  2. BUDESONIDE [Interacting]
     Indication: COLITIS ULCERATIVE
     Dosage: 3 DF, 1X/DAY
     Dates: start: 20100701

REACTIONS (2)
  - CUSHING'S SYNDROME [None]
  - DRUG INTERACTION [None]
